FAERS Safety Report 6581603-5 (Version None)
Quarter: 2010Q1

REPORT INFORMATION
  Report Type: 
  Country: None (occurrence: None)
  Receive Date: 20100215
  Receipt Date: 20100203
  Transmission Date: 20100710
  Serious: Yes (Other)
  Sender: FDA-Public Use
  Company Number: US-AMGEN-QUU390453

PATIENT
  Sex: Male
  Weight: 24 kg

DRUGS (5)
  1. EPOGEN [Suspect]
     Indication: RENAL FAILURE CHRONIC
     Dates: start: 20050101
  2. VITAMINS [Concomitant]
  3. IRON [Concomitant]
  4. CALCITRIOL [Concomitant]
  5. TUMS [Concomitant]

REACTIONS (2)
  - HAEMATOCRIT DECREASED [None]
  - THROMBOCYTOPENIA [None]
